FAERS Safety Report 6787663-0 (Version None)
Quarter: 2010Q2

REPORT INFORMATION
  Report Type: 
  Country: None (occurrence: None)
  Receive Date: 20100621
  Receipt Date: 20100604
  Transmission Date: 20101027
  Serious: Yes (Hospitalization)
  Sender: FDA-Public Use
  Company Number: 2010060031

PATIENT
  Age: 69 Year
  Sex: Male

DRUGS (7)
  1. TORSEMIDE [Suspect]
     Indication: ESSENTIAL HYPERTENSION
     Dosage: 20 MG (20 MG, 1 IN 1 D), ORAL
     Route: 048
     Dates: start: 20100312, end: 20100418
  2. MICARDIS [Suspect]
     Indication: ESSENTIAL HYPERTENSION
     Dosage: 160 MG (160 MG, 1 IN 1 D), ORAL
     Route: 048
     Dates: start: 20100312, end: 20100418
  3. NEBILET (NEBIVOLOL HCL) [Suspect]
     Indication: ESSENTIAL HYPERTENSION
     Dosage: 2.5 MG (2.5 MG, 1 IN 1 D), ORAL
     Route: 048
     Dates: start: 20100318, end: 20100418
  4. ZANIDIP (LERCANIDIPINE HCL) [Suspect]
     Indication: ESSENTIAL HYPERTENSION
     Dosage: 10 MG (10 MG, 1 IN 1 D), ORAL
     Route: 048
     Dates: start: 20100313, end: 20100418
  5. ASPIRIN [Concomitant]
  6. PRAVASTATIN [Concomitant]
  7. SINTROM [Concomitant]

REACTIONS (7)
  - DIALYSIS [None]
  - DRUG INTERACTION [None]
  - DYSPNOEA [None]
  - GENERALISED OEDEMA [None]
  - HYPOTENSION [None]
  - RENAL FAILURE ACUTE [None]
  - WEIGHT INCREASED [None]
